FAERS Safety Report 10150285 (Version 3)
Quarter: 2014Q2

REPORT INFORMATION
  Report Type: Spontaneous
  Country: US (occurrence: US)
  Receive Date: 20140502
  Receipt Date: 20140604
  Transmission Date: 20141212
  Serious: No
  Sender: FDA-Public Use
  Company Number: US-TEVA-479219USA

PATIENT
  Sex: Male

DRUGS (1)
  1. TREANDA [Suspect]
     Dates: end: 201309

REACTIONS (7)
  - Back pain [Unknown]
  - Neuralgia [Unknown]
  - Fall [Unknown]
  - Back pain [Unknown]
  - Carpal tunnel syndrome [Unknown]
  - Pain in extremity [Unknown]
  - Neuropathy peripheral [Unknown]
